FAERS Safety Report 13848531 (Version 2)
Quarter: 2018Q1

REPORT INFORMATION
  Report Type: Report from Study
  Country: IT (occurrence: IT)
  Receive Date: 20170809
  Receipt Date: 20180110
  Transmission Date: 20180508
  Serious: Yes (Other)
  Sender: FDA-Public Use
  Company Number: IT-ROCHE-1975472

PATIENT

DRUGS (1)
  1. ALTEPLASE. [Suspect]
     Active Substance: ALTEPLASE
     Indication: ISCHAEMIC STROKE
     Dosage: LESS THAN OR EQUAL TO 0.75 MG/KG
     Route: 065

REACTIONS (1)
  - Cerebral haemorrhage [Unknown]
